FAERS Safety Report 18593754 (Version 1)
Quarter: 2020Q4

REPORT INFORMATION
  Report Type: Spontaneous
  Country: FR (occurrence: FR)
  Receive Date: 20201208
  Receipt Date: 20201208
  Transmission Date: 20210114
  Serious: Yes (Hospitalization)
  Sender: FDA-Public Use
  Company Number: FR-SUN PHARMACEUTICAL INDUSTRIES LTD-2020R1-270006

PATIENT
  Age: 62 Year
  Sex: Female

DRUGS (4)
  1. EVEROLIMUS. [Interacting]
     Active Substance: EVEROLIMUS
     Dosage: 7.5 MILLIGRAM, DAILY
     Route: 065
  2. EVEROLIMUS. [Interacting]
     Active Substance: EVEROLIMUS
     Indication: RENAL CELL CARCINOMA
     Dosage: 10 MILLIGRAM, DAILY
     Route: 065
  3. VERAPAMIL [Suspect]
     Active Substance: VERAPAMIL HYDROCHLORIDE
     Indication: CARDIAC DISORDER
     Dosage: 120 MILLIGRAM, BID
     Route: 065
  4. EVEROLIMUS. [Interacting]
     Active Substance: EVEROLIMUS
     Dosage: 5 MILLIGRAM, DAILY
     Route: 065

REACTIONS (5)
  - Oedema [Unknown]
  - Stomatitis [Recovering/Resolving]
  - Drug interaction [Unknown]
  - Aphthous ulcer [Recovering/Resolving]
  - Hepatic function abnormal [Unknown]
